FAERS Safety Report 23121653 (Version 1)
Quarter: 2023Q4

REPORT INFORMATION
  Report Type: Report from Study
  Country: US (occurrence: US)
  Receive Date: 20231029
  Receipt Date: 20231029
  Transmission Date: 20240110
  Serious: Yes (Other)
  Sender: FDA-Public Use
  Company Number: US-002147023-NVSC2023US227196

PATIENT
  Age: 33 Year
  Sex: Female
  Weight: 102.06 kg

DRUGS (5)
  1. COSENTYX [Suspect]
     Active Substance: SECUKINUMAB
     Indication: Ankylosing spondylitis
     Dosage: UNK
     Route: 058
     Dates: start: 202003
  2. COSENTYX [Suspect]
     Active Substance: SECUKINUMAB
     Dosage: 300 MG
     Route: 058
     Dates: start: 202008
  3. COSENTYX [Suspect]
     Active Substance: SECUKINUMAB
     Dosage: 300 MG, QMO
     Route: 058
  4. IBUPROFEN [Suspect]
     Active Substance: IBUPROFEN
     Indication: Ankylosing spondylitis
     Dosage: UNK
     Route: 065
  5. NAPROXEN [Suspect]
     Active Substance: NAPROXEN
     Indication: Ankylosing spondylitis
     Dosage: UNK
     Route: 065

REACTIONS (18)
  - Type 2 diabetes mellitus [Unknown]
  - Tuberculosis [Unknown]
  - Muscle swelling [Unknown]
  - Pain [Recovered/Resolved]
  - Sacral pain [Unknown]
  - Herpes simplex [Unknown]
  - Joint stiffness [Unknown]
  - Asthma [Unknown]
  - Vitamin B12 deficiency [Unknown]
  - Arthritis [Unknown]
  - Thyroid mass [Unknown]
  - Joint swelling [Unknown]
  - Arthralgia [Unknown]
  - Coccydynia [Unknown]
  - Skin infection [Unknown]
  - COVID-19 [Unknown]
  - Fatigue [Unknown]
  - Therapeutic product effect incomplete [Unknown]

NARRATIVE: CASE EVENT DATE: 20200801
